FAERS Safety Report 7580738-8 (Version None)
Quarter: 2011Q2

REPORT INFORMATION
  Report Type: 
  Country: None (occurrence: None)
  Receive Date: 20110629
  Receipt Date: 20110620
  Transmission Date: 20111010
  Serious: Yes (Disabling)
  Sender: FDA-Public Use
  Company Number: FR-ASTRAZENECA-2010SE00163

PATIENT
  Age: 62 Year
  Sex: Female

DRUGS (3)
  1. LEXOMIL [Concomitant]
  2. OMEPRAZOLE [Suspect]
     Indication: GASTROOESOPHAGEAL REFLUX DISEASE
     Route: 048
     Dates: start: 20000101
  3. BICARBONATE [Concomitant]

REACTIONS (17)
  - HYPERACUSIS [None]
  - CONSTIPATION [None]
  - NAUSEA [None]
  - BALANCE DISORDER [None]
  - PARAESTHESIA [None]
  - VESTIBULAR DISORDER [None]
  - REBOUND EFFECT [None]
  - BLOOD AMYLASE INCREASED [None]
  - AGGRESSION [None]
  - FATIGUE [None]
  - URINE AMYLASE INCREASED [None]
  - AGITATION [None]
  - GAMMA-GLUTAMYLTRANSFERASE INCREASED [None]
  - PAROSMIA [None]
  - DIARRHOEA [None]
  - DIZZINESS [None]
  - DYSGEUSIA [None]
